FAERS Safety Report 6075688-2 (Version None)
Quarter: 2009Q1

REPORT INFORMATION
  Report Type: 
  Country: None (occurrence: None)
  Receive Date: 20090212
  Receipt Date: 20090209
  Transmission Date: 20090719
  Serious: Yes (Hospitalization)
  Sender: FDA-Public Use
  Company Number: US-MERCK-0902USA01514

PATIENT
  Age: 23 Year
  Sex: Female

DRUGS (3)
  1. SINGULAIR [Suspect]
     Indication: ASTHMA
     Route: 048
     Dates: start: 20060101
  2. ADVAIR DISKUS 100/50 [Concomitant]
     Route: 065
  3. PREDNISONE [Concomitant]
     Route: 065
     Dates: start: 20080101

REACTIONS (1)
  - ALLERGIC GRANULOMATOUS ANGIITIS [None]
